FAERS Safety Report 7076771-5 (Version None)
Quarter: 2010Q4

REPORT INFORMATION
  Report Type: 
  Country: None (occurrence: None)
  Receive Date: 20101022
  Receipt Date: 20101014
  Transmission Date: 20110411
  Serious: Yes (Hospitalization, Other)
  Sender: FDA-Public Use
  Company Number: 2010AC000533

PATIENT
  Age: 69 Year
  Sex: Female

DRUGS (29)
  1. DIGOXIN [Suspect]
     Dosage: 0.125 MG; TIW; PO
     Route: 048
     Dates: start: 20070601
  2. VASOTEC [Concomitant]
  3. LASIX [Concomitant]
  4. FLEXERIL [Concomitant]
  5. COREG [Concomitant]
  6. ALLOPURINOL [Concomitant]
  7. SYNTHROID [Concomitant]
  8. WELCHOL [Concomitant]
  9. NORVASC [Concomitant]
  10. VITAMIN TAB [Concomitant]
  11. ALDACTONE [Concomitant]
  12. CARDURA [Concomitant]
  13. PROTONIX [Concomitant]
  14. CLONIDINE [Concomitant]
  15. BENICAR [Concomitant]
  16. AMPICILLIN [Concomitant]
  17. DOPAMINE [Concomitant]
  18. LEVOPHEN [Concomitant]
  19. LEVAQUIN [Concomitant]
  20. ZOSYN [Concomitant]
  21. VITAMIN B-12 [Concomitant]
  22. AMIODARONE HCL [Concomitant]
  23. CARTIA XT [Concomitant]
  24. DOXAZOSIN MESYLATE [Concomitant]
  25. LEVOTHYROXINE [Concomitant]
  26. MAGNESIUM [Concomitant]
  27. MEDROL [Concomitant]
  28. ROCEPHIN [Concomitant]
  29. METOPROLOL [Concomitant]

REACTIONS (37)
  - ANAEMIA [None]
  - AORTIC VALVE SCLEROSIS [None]
  - ATELECTASIS [None]
  - ATRIAL FIBRILLATION [None]
  - BRADYCARDIA [None]
  - CARDIOACTIVE DRUG LEVEL INCREASED [None]
  - CONFUSIONAL STATE [None]
  - DEHYDRATION [None]
  - DIZZINESS [None]
  - ELECTROLYTE IMBALANCE [None]
  - FATIGUE [None]
  - HAEMODIALYSIS [None]
  - HEADACHE [None]
  - HEPATIC ENZYME INCREASED [None]
  - HYPERDYNAMIC LEFT VENTRICLE [None]
  - HYPOGLYCAEMIA [None]
  - HYPONATRAEMIA [None]
  - HYPOTENSION [None]
  - KLEBSIELLA INFECTION [None]
  - LYMPHADENOPATHY [None]
  - MALAISE [None]
  - MITRAL VALVE INCOMPETENCE [None]
  - MITRAL VALVE SCLEROSIS [None]
  - NODAL ARRHYTHMIA [None]
  - PANCREATITIS [None]
  - PERICARDIAL EFFUSION [None]
  - PERICARDITIS [None]
  - PLEURAL EFFUSION [None]
  - PLEURISY [None]
  - PNEUMONIA [None]
  - RENAL FAILURE [None]
  - RESPIRATORY FAILURE [None]
  - SINUS ARREST [None]
  - SUPRAVENTRICULAR TACHYCARDIA [None]
  - TRICUSPID VALVE INCOMPETENCE [None]
  - URINARY TRACT INFECTION [None]
  - VENTRICULAR EXTRASYSTOLES [None]
